FAERS Safety Report 6951909-6 (Version None)
Quarter: 2010Q3

REPORT INFORMATION
  Report Type: 
  Country: None (occurrence: None)
  Receive Date: 20100829
  Receipt Date: 20100420
  Transmission Date: 20110219
  Serious: No
  Sender: FDA-Public Use
  Company Number: US-ABBOTT-10P-163-0639890-00

PATIENT
  Sex: Male
  Weight: 109.87 kg

DRUGS (17)
  1. NIASPAN [Suspect]
     Indication: HIGH DENSITY LIPOPROTEIN DECREASED
     Dosage: 500 MG NIGHTLY
     Dates: start: 20090701, end: 20090901
  2. NIASPAN [Suspect]
     Indication: HIGH DENSITY LIPOPROTEIN DECREASED
     Dosage: NIGHTLY ONLY 3-4 DOSES TAKEN
     Dates: start: 20100301, end: 20100301
  3. ALLOPURINOL [Concomitant]
     Indication: PRODUCT USED FOR UNKNOWN INDICATION
     Dosage: 100MG DAILY
     Dates: start: 20090901, end: 20090901
  4. ALLOPURINOL [Concomitant]
     Dosage: 200MG DAILY
  5. ALLOPURINOL [Concomitant]
     Dosage: 300MG DAILY
     Dates: end: 20100101
  6. ULORIC [Concomitant]
     Indication: PRODUCT USED FOR UNKNOWN INDICATION
     Dosage: 40MG DAILY
     Dates: start: 20100101, end: 20100420
  7. ULORIC [Concomitant]
     Dosage: 80MG DAILY
     Dates: start: 20100420
  8. ASPIRIN [Concomitant]
     Indication: HOT FLUSH
     Route: 048
     Dates: start: 20090901
  9. ASPIRIN [Concomitant]
     Dates: start: 20100401
  10. PLAVIX [Concomitant]
     Indication: PRODUCT USED FOR UNKNOWN INDICATION
     Dosage: 75MG DAILY
     Route: 048
  11. BENADRYL [Concomitant]
     Indication: PRODUCT USED FOR UNKNOWN INDICATION
  12. LISINOPRIL [Concomitant]
     Indication: PRODUCT USED FOR UNKNOWN INDICATION
     Dosage: 10MG DAILY
     Route: 048
  13. CRESTOR [Concomitant]
     Indication: PRODUCT USED FOR UNKNOWN INDICATION
     Dosage: 10MG DAILY
     Route: 048
  14. LYRICA [Concomitant]
     Indication: PRODUCT USED FOR UNKNOWN INDICATION
     Dosage: 75MG AS NEEDED
     Route: 048
  15. INDOMETHACIN [Concomitant]
     Indication: PRODUCT USED FOR UNKNOWN INDICATION
     Dosage: 25MG-2 OR 3 PILLS AS NEEDED
     Route: 048
  16. HYDROCODENE [Concomitant]
     Indication: PRODUCT USED FOR UNKNOWN INDICATION
     Dosage: 75MG TABLETS-UP TO 6 PILLS DAILY AS NEEDED
     Route: 048
  17. NITROGLYCERIN [Concomitant]
     Indication: PRODUCT USED FOR UNKNOWN INDICATION
     Dosage: 0.4MG DAILY AS NEEDED
     Route: 061

REACTIONS (3)
  - GOUT [None]
  - HOT FLUSH [None]
  - WRONG TECHNIQUE IN DRUG USAGE PROCESS [None]
